FAERS Safety Report 11667419 (Version 2)
Quarter: 2015Q4

REPORT INFORMATION
  Report Type: Spontaneous
  Country: IR (occurrence: IR)
  Receive Date: 20151027
  Receipt Date: 20151027
  Transmission Date: 20160304
  Serious: Yes (Death, Life-Threatening, Hospitalization)
  Sender: FDA-Public Use
  Company Number: PHHY2015IR136276

PATIENT
  Age: 35 Year
  Sex: Male

DRUGS (1)
  1. VALPROATE SODIUM. [Suspect]
     Active Substance: VALPROATE SODIUM
     Indication: PRODUCT USED FOR UNKNOWN INDICATION
     Dosage: 30 UNK, UNK
     Route: 065

REACTIONS (5)
  - Liver function test abnormal [Unknown]
  - Intentional overdose [Fatal]
  - Coma [Unknown]
  - Acidosis [Unknown]
  - Toxicity to various agents [Fatal]
